FAERS Safety Report 4586393-3 (Version None)
Quarter: 2005Q1

REPORT INFORMATION
  Report Type: 
  Country: None (occurrence: None)
  Receive Date: 20050125
  Receipt Date: 20040910
  Transmission Date: 20050727
  Serious: No
  Sender: FDA-Public Use
  Company Number: USA040977854

PATIENT
  Age: 68 Year
  Sex: Female
  Weight: 36 kg

DRUGS (4)
  1. FORTEO [Suspect]
     Indication: OSTEOPOROSIS
     Dates: start: 20030801
  2. ENBREL [Concomitant]
  3. CITRACAL + D (CALCIUM CITRATE) [Concomitant]
  4. MULTI-VITAMIN [Concomitant]

REACTIONS (3)
  - INCREASED UPPER AIRWAY SECRETION [None]
  - INJECTION SITE PAIN [None]
  - NAUSEA [None]
